FAERS Safety Report 14946772 (Version 1)
Quarter: 2018Q2

REPORT INFORMATION
  Report Type: Spontaneous
  Country: US (occurrence: US)
  Receive Date: 20180508
  Receipt Date: 20180508
  Transmission Date: 20180711
  Serious: Yes (Life-Threatening)
  Sender: FDA-Public Use
  Company Number: None

PATIENT
  Age: 57 Year
  Sex: Male

DRUGS (2)
  1. INSULIN [Suspect]
     Active Substance: INSULIN NOS
     Indication: DIABETES MELLITUS
     Dosage: 40 UNITS, AT BEDTIME, SQ
     Route: 058
     Dates: start: 20161216
  2. INSULIN [Suspect]
     Active Substance: INSULIN NOS
     Indication: DIABETES MELLITUS
     Route: 058
     Dates: start: 20170426

REACTIONS (3)
  - Drug dose omission [None]
  - Hyperglycaemia [None]
  - Diabetic ketoacidosis [None]

NARRATIVE: CASE EVENT DATE: 20180213
